FAERS Safety Report 15121448 (Version 7)
Quarter: 2020Q1

REPORT INFORMATION
  Report Type: Spontaneous
  Country: NL (occurrence: NL)
  Receive Date: 20180709
  Receipt Date: 20200120
  Transmission Date: 20200409
  Serious: Yes (Hospitalization)
  Sender: FDA-Public Use
  Company Number: NL-MYLANLABS-2018M1048378

PATIENT
  Age: 51 Year
  Sex: Male
  Weight: 80 kg

DRUGS (6)
  1. PARACETAMOL [Concomitant]
     Active Substance: ACETAMINOPHEN
     Indication: PRODUCT USED FOR UNKNOWN INDICATION
     Dosage: 1000 MILLIGRAM, TID (3X DAAGS 2 TABLETTEN; 1000 MG, Q8H)
     Route: 065
  2. CLINDAMYCIN. [Suspect]
     Active Substance: CLINDAMYCIN
     Indication: LOCALISED INFECTION
     Dosage: 600 MILLIGRAM, TID (3X PER DAG 2 TABLETTEN. 06:00 / 14:00 EN 22:00U; 600 MG, Q8H)
     Route: 048
     Dates: start: 20171002
  3. NAPROXEN. [Concomitant]
     Active Substance: NAPROXEN
     Indication: PRODUCT USED FOR UNKNOWN INDICATION
     Dosage: 2X DAAGS 1 TABLET (12 HOUR; 1 DF, Q12H)
     Route: 065
  4. OXYCODON [Concomitant]
     Active Substance: OXYCODONE
     Indication: PRODUCT USED FOR UNKNOWN INDICATION
     Dosage: 10 MILLIGRAM, BID (2X DAAGS 1 TABLET; 1 DF, Q12H)
     Route: 065
  5. OXYCODON [Concomitant]
     Active Substance: OXYCODONE
     Dosage: 1 DOSAGE FORM
     Route: 065
  6. NAPROXEN. [Concomitant]
     Active Substance: NAPROXEN
     Dosage: 1 DOSAGE FORM
     Route: 065

REACTIONS (3)
  - Erythema [Recovered/Resolved]
  - Peripheral swelling [Recovered/Resolved]
  - Joint swelling [Recovered/Resolved]

NARRATIVE: CASE EVENT DATE: 20171006
